FAERS Safety Report 11411467 (Version 2)
Quarter: 2015Q3

REPORT INFORMATION
  Report Type: Spontaneous
  Country: US (occurrence: US)
  Receive Date: 20150821
  Receipt Date: 20150903
  Transmission Date: 20151125
  Serious: Yes (Other)
  Sender: FDA-Public Use
  Company Number: US-ELI_LILLY_AND_COMPANY-US201007001562

PATIENT
  Sex: Female

DRUGS (7)
  1. HUMALOG [Interacting]
     Active Substance: INSULIN LISPRO
     Indication: TYPE 1 DIABETES MELLITUS
     Dosage: UNK, 3/D
  2. CONTRACEPTIVES [Concomitant]
     Active Substance: UNSPECIFIED INGREDIENT
  3. HUMALOG MIX75/25 [Suspect]
     Active Substance: INSULIN LISPRO
     Indication: TYPE 1 DIABETES MELLITUS
     Dosage: 26 U, EACH MORNING
     Dates: start: 20100325
  4. HUMULIN N [Interacting]
     Active Substance: INSULIN HUMAN
     Indication: TYPE 1 DIABETES MELLITUS
  5. HUMALOG MIX75/25 [Suspect]
     Active Substance: INSULIN LISPRO
     Dosage: 22 U, EACH EVENING
  6. ALCOHOL. [Interacting]
     Active Substance: ALCOHOL
  7. LEVEMIR [Concomitant]
     Active Substance: INSULIN DETEMIR
     Dosage: UNK, UNK
     Dates: end: 20100325

REACTIONS (5)
  - Hypoglycaemic seizure [Unknown]
  - Drug ineffective [Unknown]
  - Blood glucose increased [Unknown]
  - Drug interaction [Unknown]
  - Blood glucose decreased [Unknown]
